FAERS Safety Report 12724286 (Version 1)
Quarter: 2016Q3

REPORT INFORMATION
  Report Type: Spontaneous
  Country: US (occurrence: US)
  Receive Date: 20160908
  Receipt Date: 20160908
  Transmission Date: 20161109
  Serious: Yes (Hospitalization, Disabling, Other)
  Sender: FDA-Public Use
  Company Number: None

PATIENT
  Age: 90 Year
  Sex: Female
  Weight: 48.54 kg

DRUGS (2)
  1. CLEARTRACT [Concomitant]
  2. COMFORT SHIELD BARRIER [Suspect]
     Active Substance: DIMETHICONE
     Indication: INCONTINENCE
     Dosage: SAGE WIPES - QUANITY -24 COUNT - 3 PACKS  24 COUNT - 1 PACK; FREQUENCY -?AFTER EACH BOWEL MOVEMENT OR URINE DIAPERS
     Route: 061
     Dates: start: 20160811, end: 20160901

REACTIONS (2)
  - Wrong technique in product usage process [None]
  - Product contamination microbial [None]

NARRATIVE: CASE EVENT DATE: 20160811
